FAERS Safety Report 10013592 (Version 3)
Quarter: 2014Q2

REPORT INFORMATION
  Report Type: Spontaneous
  Country: IE (occurrence: IE)
  Receive Date: 20140315
  Receipt Date: 20140610
  Transmission Date: 20141212
  Serious: Yes (Death, Other)
  Sender: FDA-Public Use
  Company Number: IE-AMGEN-IRLSP2014017450

PATIENT
  Age: 94 Year
  Sex: Female

DRUGS (11)
  1. PROLIA [Suspect]
     Indication: OSTEOPOROSIS
     Dosage: 60 MG, Q6MO
     Route: 058
  2. PROLIA [Suspect]
     Indication: OSTEOARTHRITIS
  3. PROLIA [Suspect]
     Indication: HIP FRACTURE
  4. PROLIA [Suspect]
     Indication: PELVIC FRACTURE
  5. ARTELAC                            /00002701/ [Concomitant]
  6. GAVISCON                           /00237601/ [Concomitant]
  7. STILNOCT [Concomitant]
     Dosage: 5 MG, UNK
  8. NEXIUM                             /01479302/ [Concomitant]
     Dosage: 20 MG, UNK
  9. SERTRALINE [Concomitant]
     Dosage: 100 MG, UNK
  10. DIAZEPAM [Concomitant]
     Dosage: 5 MG, UNK
  11. NITRAPLAN [Concomitant]

REACTIONS (4)
  - Bronchopneumonia [Fatal]
  - Pneumonia [Not Recovered/Not Resolved]
  - Asthenia [Unknown]
  - Urinary tract infection [Not Recovered/Not Resolved]
